FAERS Safety Report 24426633 (Version 1)
Quarter: 2024Q4

REPORT INFORMATION
  Report Type: Spontaneous
  Country: US (occurrence: US)
  Receive Date: 20241011
  Receipt Date: 20241011
  Transmission Date: 20250115
  Serious: No
  Sender: SANDOZ
  Company Number: US-GLAXOSMITHKLINE-US2019193512

PATIENT
  Age: 92 Year
  Sex: Female

DRUGS (1)
  1. DICLOFENAC DIETHYLAMINE [Suspect]
     Active Substance: DICLOFENAC DIETHYLAMINE
     Indication: Arthralgia
     Dosage: QID (ALMOST FOUR TIMES A DAY)
     Route: 065

REACTIONS (4)
  - Product administered at inappropriate site [Unknown]
  - Product complaint [Unknown]
  - Wrong technique in product usage process [Unknown]
  - Drug effective for unapproved indication [Unknown]
